FAERS Safety Report 8371553-6 (Version None)
Quarter: 2012Q2

REPORT INFORMATION
  Report Type: 
  Country: None (occurrence: None)
  Receive Date: 20120518
  Receipt Date: 20120510
  Transmission Date: 20120825
  Serious: Yes (Hospitalization)
  Sender: FDA-Public Use
  Company Number: JP-B.I. PHARMACEUTICALS,INC./RIDGEFIELD-2012-EU-02582GD

PATIENT

DRUGS (1)
  1. PERSANTINE [Suspect]
     Indication: THROMBOSIS PROPHYLAXIS
     Dosage: 75 MG

REACTIONS (1)
  - SUBDURAL HAEMATOMA [None]
